FAERS Safety Report 8357560-8 (Version None)
Quarter: 2012Q2

REPORT INFORMATION
  Report Type: 
  Country: None (occurrence: None)
  Receive Date: 20120511
  Receipt Date: 20120426
  Transmission Date: 20120825
  Serious: Yes (Hospitalization)
  Sender: FDA-Public Use
  Company Number: 2012050036

PATIENT
  Age: 74 Year
  Sex: Male

DRUGS (7)
  1. RAMIPRIL [Suspect]
     Indication: HYPERTENSION
     Dosage: 10 MG (10 MG, 1 IN 1 D),ORAL
     Route: 048
     Dates: start: 20091005
  2. TORASEMIDE (TORASEMIDE) [Suspect]
     Indication: HYPERTENSION
     Dosage: (50 MG, 1 IN 1 D),ORAL
     Route: 048
     Dates: start: 20091005
  3. TORASEMIDE (TORASEMIDE) [Suspect]
     Indication: OEDEMA
     Dosage: (50 MG, 1 IN 1 D),ORAL
     Route: 048
     Dates: start: 20091005
  4. RASILEZ(ALISKIREN) [Suspect]
     Indication: PROTEINURIA
     Dosage: 300 MG (300 MG, 1 IN 1 D),ORAL
     Route: 048
     Dates: start: 20101010
  5. RASILEZ(ALISKIREN) [Suspect]
     Indication: HYPERTENSION
     Dosage: 300 MG (300 MG, 1 IN 1 D),ORAL
     Route: 048
     Dates: start: 20101010
  6. BISOPROLOL FUMARATE [Suspect]
     Indication: HYPERTENSION
     Dosage: 5 MG (5 MG, 1 IN 1 D),ORAL
     Route: 048
     Dates: start: 20091005
  7. SIMVASTATIN [Concomitant]

REACTIONS (1)
  - ANGINA PECTORIS [None]
